FAERS Safety Report 4463405-9 (Version None)
Quarter: 2004Q3

REPORT INFORMATION
  Report Type: 
  Country: None (occurrence: None)
  Receive Date: 20040930
  Receipt Date: 20040830
  Transmission Date: 20050211
  Serious: Yes (Other)
  Sender: FDA-Public Use
  Company Number: PHBS2004ES11536

PATIENT
  Age: 66 Year
  Sex: Female
  Weight: 64 kg

DRUGS (7)
  1. VALSARTAN [Suspect]
     Indication: HYPERTENSION
     Dosage: 60 MG/DAY
  2. DIURETICS [Concomitant]
  3. MIDAZOLAM HCL [Concomitant]
  4. ROPIVACAINE [Concomitant]
     Indication: ANAESTHESIA
     Dosage: .375 %, UNK
  5. FENTANYL [Concomitant]
     Indication: ANAESTHESIA
     Dosage: 5 UG/ML, UNK
  6. PROPOFOL [Concomitant]
     Indication: ANAESTHESIA
     Dosage: 2.5 MG/KG, UNK
  7. CISATRACURIUM [Concomitant]
     Indication: RELAXATION THERAPY
     Dosage: .15 MG/KG, UNK

REACTIONS (2)
  - HAEMOGLOBIN DECREASED [None]
  - HYPOTENSION [None]
